FAERS Safety Report 12776869 (Version 1)
Quarter: 2016Q3

REPORT INFORMATION
  Report Type: Report from Study
  Country: DE (occurrence: DE)
  Receive Date: 20160923
  Receipt Date: 20160923
  Transmission Date: 20161109
  Serious: Yes (Hospitalization)
  Sender: FDA-Public Use
  Company Number: US-ASTRAZENECA-2016SF01096

PATIENT
  Sex: Male

DRUGS (15)
  1. SYNAGIS [Suspect]
     Active Substance: PALIVIZUMAB
     Indication: BRONCHOPULMONARY DYSPLASIA
     Dosage: 110.0MG ONCE/SINGLE ADMINISTRATION
     Route: 030
     Dates: start: 20080310, end: 20080310
  2. SYNAGIS [Suspect]
     Active Substance: PALIVIZUMAB
     Indication: PREMATURE BABY
     Dosage: 65.3MG ONCE/SINGLE ADMINISTRATION
     Route: 030
     Dates: start: 20080919, end: 20080919
  3. SYNAGIS [Suspect]
     Active Substance: PALIVIZUMAB
     Indication: ANTIVIRAL PROPHYLAXIS
     Dosage: 110.0MG ONCE/SINGLE ADMINISTRATION
     Route: 030
     Dates: start: 20080310, end: 20080310
  4. SYNAGIS [Suspect]
     Active Substance: PALIVIZUMAB
     Indication: ANTIVIRAL PROPHYLAXIS
     Dosage: 90.0MG ONCE/SINGLE ADMINISTRATION
     Route: 030
     Dates: start: 20081217, end: 20081217
  5. SYNAGIS [Suspect]
     Active Substance: PALIVIZUMAB
     Indication: PREMATURE BABY
     Dosage: 110.0MG ONCE/SINGLE ADMINISTRATION
     Route: 030
     Dates: start: 20080310, end: 20080310
  6. SYNAGIS [Suspect]
     Active Substance: PALIVIZUMAB
     Indication: ANTIVIRAL PROPHYLAXIS
     Dosage: 65.3MG ONCE/SINGLE ADMINISTRATION
     Route: 030
     Dates: start: 20080919, end: 20080919
  7. SYNAGIS [Suspect]
     Active Substance: PALIVIZUMAB
     Indication: BRONCHOPULMONARY DYSPLASIA
     Dosage: 84.0MG ONCE/SINGLE ADMINISTRATION
     Route: 030
     Dates: start: 20081113, end: 20081113
  8. SYNAGIS [Suspect]
     Active Substance: PALIVIZUMAB
     Indication: PREMATURE BABY
     Dosage: 90.0MG ONCE/SINGLE ADMINISTRATION
     Route: 030
     Dates: start: 20081217, end: 20081217
  9. SYNAGIS [Suspect]
     Active Substance: PALIVIZUMAB
     Indication: BRONCHOPULMONARY DYSPLASIA
     Dosage: 90.0MG ONCE/SINGLE ADMINISTRATION
     Route: 030
     Dates: start: 20081217, end: 20081217
  10. SYNAGIS [Suspect]
     Active Substance: PALIVIZUMAB
     Indication: ANTIVIRAL PROPHYLAXIS
     Dosage: 84.0MG ONCE/SINGLE ADMINISTRATION
     Route: 030
     Dates: start: 20081113, end: 20081113
  11. SYNAGIS [Suspect]
     Active Substance: PALIVIZUMAB
     Indication: BRONCHOPULMONARY DYSPLASIA
     Dosage: 65.3MG ONCE/SINGLE ADMINISTRATION
     Route: 030
     Dates: start: 20080919, end: 20080919
  12. SYNAGIS [Suspect]
     Active Substance: PALIVIZUMAB
     Indication: ANTIVIRAL PROPHYLAXIS
     Dosage: 78.0MG ONCE/SINGLE ADMINISTRATION
     Route: 030
     Dates: start: 20081016, end: 20081016
  13. SYNAGIS [Suspect]
     Active Substance: PALIVIZUMAB
     Indication: BRONCHOPULMONARY DYSPLASIA
     Dosage: 78.0MG ONCE/SINGLE ADMINISTRATION
     Route: 030
     Dates: start: 20081016, end: 20081016
  14. SYNAGIS [Suspect]
     Active Substance: PALIVIZUMAB
     Indication: PREMATURE BABY
     Dosage: 78.0MG ONCE/SINGLE ADMINISTRATION
     Route: 030
     Dates: start: 20081016, end: 20081016
  15. SYNAGIS [Suspect]
     Active Substance: PALIVIZUMAB
     Indication: PREMATURE BABY
     Dosage: 84.0MG ONCE/SINGLE ADMINISTRATION
     Route: 030
     Dates: start: 20081113, end: 20081113

REACTIONS (2)
  - Nosocomial infection [Unknown]
  - Bronchitis [Unknown]
